FAERS Safety Report 24642064 (Version 2)
Quarter: 2024Q4

REPORT INFORMATION
  Report Type: Spontaneous
  Country: US (occurrence: US)
  Receive Date: 20241120
  Receipt Date: 20241122
  Transmission Date: 20250114
  Serious: Yes (Life-Threatening, Hospitalization, Other)
  Sender: PFIZER
  Company Number: US-MLMSERVICE-20241112-PI252151-00175-1

PATIENT
  Age: 4 Decade
  Sex: Female

DRUGS (3)
  1. HEPARIN SODIUM [Suspect]
     Active Substance: HEPARIN SODIUM
     Dosage: UNK
  2. PENICILLIN G [Concomitant]
     Active Substance: PENICILLIN G
     Indication: Antibiotic therapy
     Dosage: 12 MILLION UNITS EVERY 12 HOURS
  3. CLINDAMYCIN [Concomitant]
     Active Substance: CLINDAMYCIN
     Indication: Antibiotic therapy
     Dosage: 800 MG EVERY 8 HOURS

REACTIONS (1)
  - Heparin-induced thrombocytopenia [Recovered/Resolved]
